FAERS Safety Report 8306209-9 (Version None)
Quarter: 2012Q2

REPORT INFORMATION
  Report Type: 
  Country: None (occurrence: None)
  Receive Date: 20120423
  Receipt Date: 20120409
  Transmission Date: 20120825
  Serious: Yes (Other)
  Sender: FDA-Public Use
  Company Number: PHHY2012JP032576

PATIENT
  Age: 40 Year
  Sex: Female

DRUGS (1)
  1. CYCLOSPORINE [Suspect]
     Dosage: UNK UKN, UNK

REACTIONS (1)
  - CEREBROVASCULAR SPASM [None]
